FAERS Safety Report 18197491 (Version 3)
Quarter: 2025Q2

REPORT INFORMATION
  Report Type: Report from Study
  Country: US (occurrence: US)
  Receive Date: 20200826
  Receipt Date: 20250629
  Transmission Date: 20250717
  Serious: Yes (Death, Life-Threatening, Hospitalization)
  Sender: AUROBINDO
  Company Number: US-MYLANLABS-2020M1074015

PATIENT
  Age: 6 Year

DRUGS (7)
  1. METHOTREXATE [Suspect]
     Active Substance: METHOTREXATE
     Indication: Acute lymphocytic leukaemia
     Route: 037
  2. DEXAMETHASONE [Suspect]
     Active Substance: DEXAMETHASONE
     Indication: Acute lymphocytic leukaemia
     Dosage: 20 MILLIGRAM/SQ. METER, BID,AS A PART OF UK ALLR3 REINDUCTION ..
     Route: 065
  3. VORINOSTAT [Suspect]
     Active Substance: VORINOSTAT
     Indication: Acute lymphocytic leukaemia
     Dosage: 180 MG/M2, QD, MAXIMUM DOSE 400MG DAILY; ON DAY 2-7 AND DAY 16-21
     Route: 048
  4. VINCRISTINE [Suspect]
     Active Substance: VINCRISTINE
     Indication: Acute lymphocytic leukaemia
     Route: 065
  5. PEG/L-ASPARAGINASE [Suspect]
     Active Substance: PEGASPARGASE
     Indication: Acute lymphocytic leukaemia
     Route: 065
  6. MITOXANTRONE [Suspect]
     Active Substance: MITOXANTRONE HYDROCHLORIDE
     Indication: Acute lymphocytic leukaemia
     Route: 065
  7. DECITABINE [Suspect]
     Active Substance: DECITABINE
     Indication: Acute lymphocytic leukaemia
     Route: 042

REACTIONS (2)
  - Necrotising fasciitis [Fatal]
  - Pseudomonas infection [Unknown]
